FAERS Safety Report 24984819 (Version 1)
Quarter: 2025Q1

REPORT INFORMATION
  Report Type: Spontaneous
  Country: DE (occurrence: DE)
  Receive Date: 20250219
  Receipt Date: 20250219
  Transmission Date: 20250408
  Serious: No
  Sender: ASTELLAS
  Company Number: DE-ASTELLAS-2025-AER-009623

PATIENT
  Sex: Female

DRUGS (1)
  1. VEOZAH [Suspect]
     Active Substance: FEZOLINETANT
     Indication: Product used for unknown indication
     Route: 050
     Dates: start: 20250217

REACTIONS (5)
  - Feeling abnormal [Unknown]
  - Dysstasia [Unknown]
  - Head discomfort [Unknown]
  - Pain [Unknown]
  - Headache [Unknown]

NARRATIVE: CASE EVENT DATE: 20250217
